FAERS Safety Report 7647896-8 (Version None)
Quarter: 2011Q3

REPORT INFORMATION
  Report Type: 
  Country: None (occurrence: None)
  Receive Date: 20110801
  Receipt Date: 20110624
  Transmission Date: 20111222
  Serious: No
  Sender: FDA-Public Use
  Company Number: US-ABBOTT-11P-163-0834551-00

PATIENT
  Age: 72 Year
  Sex: Female
  Weight: 64.014 kg

DRUGS (5)
  1. CREON [Suspect]
     Dates: start: 20100101, end: 20110620
  2. LEVOTHYROXINE SODIUM [Concomitant]
     Indication: PRODUCT USED FOR UNKNOWN INDICATION
  3. CREON [Suspect]
     Indication: PANCREATIC DISORDER
     Dates: start: 20080101
  4. MINERAL OIL [Concomitant]
     Indication: FLATULENCE
  5. ASPIRIN [Concomitant]
     Indication: PRODUCT USED FOR UNKNOWN INDICATION

REACTIONS (6)
  - NAUSEA [None]
  - DIZZINESS [None]
  - BLOOD GLUCOSE INCREASED [None]
  - FEELING ABNORMAL [None]
  - FLATULENCE [None]
  - ABDOMINAL PAIN UPPER [None]
